FAERS Safety Report 4491961-3 (Version None)
Quarter: 2004Q4

REPORT INFORMATION
  Report Type: 
  Country: None (occurrence: None)
  Receive Date: 20041029
  Receipt Date: 20041029
  Transmission Date: 20050328
  Serious: No
  Sender: FDA-Public Use
  Company Number: None

PATIENT
  Age: 80 Year
  Sex: Male
  Weight: 69.8539 kg

DRUGS (13)
  1. ZYVOX [Suspect]
     Indication: BACTERIA SPUTUM IDENTIFIED
     Dosage: 600MG BID
  2. ZYVOX [Suspect]
     Indication: STAPHYLOCOCCAL INFECTION
     Dosage: 600MG BID
  3. ZYVOX [Suspect]
     Indication: WOUND INFECTION STAPHYLOCOCCAL
     Dosage: 600MG BID
  4. ARGINEED [Concomitant]
  5. PREMED [Concomitant]
  6. PREVACID [Concomitant]
  7. LIPITOR [Concomitant]
  8. VIT C [Concomitant]
  9. CAPOTEN [Concomitant]
  10. LANTUS [Concomitant]
  11. LUMIGAN [Concomitant]
  12. MVI/NA [Concomitant]
  13. REGULAR INSULIN [Concomitant]

REACTIONS (1)
  - RASH GENERALISED [None]
